FAERS Safety Report 4872506-2 (Version None)
Quarter: 2005Q4

REPORT INFORMATION
  Report Type: 
  Country: None (occurrence: None)
  Receive Date: 20051230
  Receipt Date: 20051230
  Transmission Date: 20060501
  Serious: Yes (Hospitalization, Other)
  Sender: FDA-Public Use
  Company Number: None

PATIENT
  Sex: Male
  Weight: 81.3 kg

DRUGS (5)
  1. PENTOSTATIN [Suspect]
     Indication: CHRONIC LYMPHOCYTIC LEUKAEMIA
     Dosage: SEE IMAGE
     Dates: start: 20051220, end: 20051220
  2. PENTOSTATIN [Suspect]
     Indication: CHRONIC LYMPHOCYTIC LEUKAEMIA
     Dosage: SEE IMAGE
     Dates: start: 20051227
  3. RITUXAN [Suspect]
     Dosage: SEE IMAGE
     Dates: start: 20051220, end: 20051224
  4. RITUXAN [Suspect]
     Dosage: SEE IMAGE
     Dates: start: 20051227
  5. CYTOXAN [Suspect]
     Dosage: SEE IMAGE
     Dates: start: 20051220, end: 20051220

REACTIONS (5)
  - BLOOD BLISTER [None]
  - BODY TEMPERATURE INCREASED [None]
  - ORAL MUCOSAL BLISTERING [None]
  - PETECHIAE [None]
  - SPUTUM DISCOLOURED [None]
